FAERS Safety Report 5419736-9 (Version None)
Quarter: 2007Q3

REPORT INFORMATION
  Report Type: 
  Country: None (occurrence: None)
  Receive Date: 20070820
  Receipt Date: 20070811
  Transmission Date: 20080115
  Serious: Yes (Hospitalization)
  Sender: FDA-Public Use
  Company Number: KR-AMGEN-US228273

PATIENT
  Sex: Male
  Weight: 59 kg

DRUGS (3)
  1. ENBREL [Suspect]
     Indication: ANKYLOSING SPONDYLITIS
     Dosage: 25 MG/VIAL
     Route: 058
     Dates: start: 20050101, end: 20070525
  2. SULFASALAZINE [Concomitant]
  3. METHOTREXATE [Concomitant]

REACTIONS (4)
  - ARTHRITIS [None]
  - GENITOURINARY CHLAMYDIA INFECTION [None]
  - PYURIA [None]
  - UVEITIS [None]
